FAERS Safety Report 9642837 (Version 9)
Quarter: 2018Q1

REPORT INFORMATION
  Report Type: Report from Study
  Country: BR (occurrence: BR)
  Receive Date: 20131024
  Receipt Date: 20180102
  Transmission Date: 20180509
  Serious: Yes (Other)
  Sender: FDA-Public Use
  Company Number: PHHY2013BR114734

PATIENT
  Age: 61 Year
  Sex: Female
  Weight: 54 kg

DRUGS (8)
  1. SANDOSTATIN LAR DEPOT [Suspect]
     Active Substance: OCTREOTIDE ACETATE
     Dosage: 30 MG, QMO, (ONCE A MONTH)
     Route: 030
  2. SANDOSTATIN LAR DEPOT [Suspect]
     Active Substance: OCTREOTIDE ACETATE
     Dosage: 30 MG, QMO, EVERY 28 DAYS
     Route: 030
     Dates: start: 20091126
  3. SANDOSTATIN LAR DEPOT [Suspect]
     Active Substance: OCTREOTIDE ACETATE
     Indication: ACROMEGALY
     Dosage: 20 MG, QMO, EVERY 28 DAYS
     Route: 030
     Dates: start: 2004, end: 20091029
  4. SANDOSTATIN LAR DEPOT [Suspect]
     Active Substance: OCTREOTIDE ACETATE
     Dosage: 30 MG, UNK
     Route: 030
  5. CABERGOLINE. [Suspect]
     Active Substance: CABERGOLINE
     Indication: BLOOD PROLACTIN INCREASED
     Dosage: 4 DF, QD
     Route: 048
  6. CABERGOLINE. [Suspect]
     Active Substance: CABERGOLINE
     Indication: ACROMEGALY
  7. BROMOCRIPTINE [Concomitant]
     Active Substance: BROMOCRIPTINE
     Indication: PROLACTIN-PRODUCING PITUITARY TUMOUR
     Dosage: UNK
     Route: 065
  8. SANDOSTATIN LAR DEPOT [Suspect]
     Active Substance: OCTREOTIDE ACETATE
     Dosage: 10 MG, UNK
     Route: 030

REACTIONS (23)
  - General physical health deterioration [Unknown]
  - Diarrhoea [Unknown]
  - Blood growth hormone increased [Unknown]
  - Nasal obstruction [Not Recovered/Not Resolved]
  - Cardiomegaly [Unknown]
  - Therapy non-responder [Unknown]
  - Insulin-like growth factor increased [Unknown]
  - Blood triglycerides increased [Unknown]
  - Dyspnoea [Not Recovered/Not Resolved]
  - Galactorrhoea [Not Recovered/Not Resolved]
  - Mammary duct ectasia [Unknown]
  - Blood cholesterol increased [Unknown]
  - Somnolence [Unknown]
  - Inguinal hernia [Unknown]
  - Nasal discomfort [Not Recovered/Not Resolved]
  - Weight increased [Unknown]
  - Blood prolactin increased [Unknown]
  - Blood glucose increased [Unknown]
  - Rhinitis [Not Recovered/Not Resolved]
  - Pituitary tumour [Unknown]
  - Neoplasm progression [Unknown]
  - Lung disorder [Unknown]
  - Benign breast neoplasm [Not Recovered/Not Resolved]

NARRATIVE: CASE EVENT DATE: 201605
